FAERS Safety Report 13935267 (Version 8)
Quarter: 2018Q2

REPORT INFORMATION
  Report Type: Report from Study
  Country: TW (occurrence: TW)
  Receive Date: 20170905
  Receipt Date: 20180419
  Transmission Date: 20180711
  Serious: Yes (Hospitalization)
  Sender: FDA-Public Use
  Company Number: TW-UCBSA-2017019844

PATIENT
  Sex: Male
  Weight: 95 kg

DRUGS (39)
  1. LACOSAMIDE. [Suspect]
     Active Substance: LACOSAMIDE
     Dosage: 300 MG, 2X/DAY (BID)
     Route: 048
     Dates: start: 20170523, end: 20170810
  2. LACOSAMIDE. [Suspect]
     Active Substance: LACOSAMIDE
     Dosage: 200 MG, 2X/DAY (BID)
     Route: 048
     Dates: start: 20170821, end: 20170830
  3. AMOXYCILLIN [Concomitant]
     Active Substance: AMOXICILLIN
     Indication: UPPER RESPIRATORY TRACT INFECTION
     Dosage: 500 MG, 3X/DAY (TID)
     Route: 048
     Dates: start: 20170509, end: 20170512
  4. ZONISAMIDE. [Concomitant]
     Active Substance: ZONISAMIDE
     Dosage: 200 MG, 2X/DAY (BID)
     Route: 048
     Dates: start: 20170516
  5. ARIPIPRAZOLE. [Concomitant]
     Active Substance: ARIPIPRAZOLE
     Dosage: 5 MG, 2X/DAY (BID)
     Route: 048
     Dates: start: 20170830, end: 20170831
  6. VALPROATE SODIUM. [Concomitant]
     Active Substance: VALPROATE SODIUM
     Indication: EPILEPSY
     Dosage: 1800 MG ONCE
     Dates: start: 20170830, end: 20170830
  7. PANADOL [Concomitant]
     Active Substance: ACETAMINOPHEN
     Dosage: 50 MG, 3X/DAY (TID)
     Route: 048
     Dates: start: 20170529, end: 20170601
  8. LACOSAMIDE. [Suspect]
     Active Substance: LACOSAMIDE
     Dosage: 200MG QAM 250MG QPM
     Route: 048
     Dates: start: 20170418, end: 20170425
  9. LACOSAMIDE. [Suspect]
     Active Substance: LACOSAMIDE
     Dosage: 250 MG, 2X/DAY (BID)
     Route: 048
     Dates: start: 20170425, end: 20170516
  10. OPIUM TINCTURE [Concomitant]
     Active Substance: MORPHINE
     Indication: UPPER RESPIRATORY TRACT INFECTION
     Dosage: 0.06 ML, 3X/DAY (TID)
     Route: 048
     Dates: start: 20170509, end: 20170512
  11. LAMOTRIGINE. [Concomitant]
     Active Substance: LAMOTRIGINE
     Dosage: 100 MG, 2X/DAY (BID)
     Route: 048
     Dates: start: 20171023
  12. ARIPIPRAZOLE. [Concomitant]
     Active Substance: ARIPIPRAZOLE
     Indication: EMOTIONAL DISORDER
     Dosage: 5 MG, 2X/DAY (BID)
     Route: 048
     Dates: start: 20161108, end: 20170516
  13. FRISIUM [Concomitant]
     Active Substance: CLOBAZAM
     Indication: PRODUCT USED FOR UNKNOWN INDICATION
  14. PANADOL [Concomitant]
     Active Substance: ACETAMINOPHEN
     Dosage: 50 MG, 3X/DAY (TID)
     Route: 048
     Dates: start: 20170611, end: 20170614
  15. DEXCHLORPHENIRAMINE MALEATE. [Concomitant]
     Active Substance: DEXCHLORPHENIRAMINE MALEATE
     Dosage: 2 MG, 3X/DAY (TID)
     Route: 048
     Dates: start: 20170611, end: 20170614
  16. LACOSAMIDE. [Suspect]
     Active Substance: LACOSAMIDE
     Dosage: 100 MG, 2X/DAY (BID)
     Route: 048
     Dates: start: 20170228, end: 20170307
  17. PANADOL [Concomitant]
     Active Substance: ACETAMINOPHEN
     Indication: UPPER RESPIRATORY TRACT INFECTION
     Dosage: 50 MG, 3X/DAY (TID)
     Route: 048
     Dates: start: 20170509, end: 20170512
  18. LACOSAMIDE. [Suspect]
     Active Substance: LACOSAMIDE
     Dosage: 250MG QAM 300MG QPM
     Route: 048
     Dates: start: 20170516, end: 20170523
  19. ARIPIPRAZOLE. [Concomitant]
     Active Substance: ARIPIPRAZOLE
     Dosage: 15 MG, 2X/DAY (BID)
     Route: 048
     Dates: start: 20170831, end: 20170912
  20. LACOSAMIDE. [Suspect]
     Active Substance: LACOSAMIDE
     Indication: EPILEPSY
     Dosage: 50 MG, 2X/DAY (BID)
     Route: 048
     Dates: start: 20170221, end: 20170228
  21. LACOSAMIDE. [Suspect]
     Active Substance: LACOSAMIDE
     Dosage: 250 MG, 2X/DAY (BID)
     Route: 048
     Dates: start: 20170810, end: 20170821
  22. GLYCYRRHIZA EXTRACT [Concomitant]
     Active Substance: GLYCYRRHIZA EXTRACT
     Indication: UPPER RESPIRATORY TRACT INFECTION
     Dosage: 0.6 ML, 3X/DAY (TID)
     Route: 048
     Dates: start: 20170509, end: 20170512
  23. PERAMPANEL [Concomitant]
     Active Substance: PERAMPANEL
     Indication: EPILEPSY
     Dosage: 4 MG, 2X/DAY (BID)
     Route: 048
     Dates: start: 20161108, end: 20170830
  24. ZONEGRAN [Concomitant]
     Active Substance: ZONISAMIDE
     Indication: PRODUCT USED FOR UNKNOWN INDICATION
     Dosage: 200 MG, 2X/DAY (BID), 100 MG/TAB 2 TAB BID
  25. LACOSAMIDE. [Suspect]
     Active Substance: LACOSAMIDE
     Dosage: 250 MG, 2X/DAY (BID)
     Route: 048
     Dates: start: 20170830, end: 20171023
  26. ZONISAMIDE. [Concomitant]
     Active Substance: ZONISAMIDE
     Indication: EPILEPSY
     Dosage: 300 MG, 2X/DAY (BID)
     Route: 048
     Dates: start: 20170124, end: 20170516
  27. PERAMPANEL [Concomitant]
     Active Substance: PERAMPANEL
     Dosage: 3 MG, 2X/DAY (BID)
     Route: 048
     Dates: start: 20170830, end: 20170831
  28. ARIPIPRAZOLE. [Concomitant]
     Active Substance: ARIPIPRAZOLE
     Dosage: 10 MG, 2X/DAY (BID)
     Route: 048
     Dates: start: 20170831, end: 20170831
  29. FYCOMPA [Concomitant]
     Active Substance: PERAMPANEL
     Indication: PRODUCT USED FOR UNKNOWN INDICATION
     Dosage: 4 MG, 2X/DAY (BID), 2 MG/TAB 2 TAB BID
     Route: 048
  30. DEXCHLORPHENIRAMINE MALEATE. [Concomitant]
     Active Substance: DEXCHLORPHENIRAMINE MALEATE
     Dosage: 2 MG, 3X/DAY (TID)
     Route: 048
     Dates: start: 20170529, end: 20170601
  31. ANTIMONY POTASSIUM TARTRATE [Concomitant]
     Active Substance: ANTIMONY POTASSIUM TARTRATE
     Indication: UPPER RESPIRATORY TRACT INFECTION
     Dosage: 1.2 MG, 3X/DAY (TID)
     Route: 048
     Dates: start: 20170509, end: 20170512
  32. LAMOTRIGINE. [Concomitant]
     Active Substance: LAMOTRIGINE
     Indication: EPILEPSY
     Dosage: 150 MG, 2X/DAY (BID)
     Route: 048
     Dates: start: 20170109, end: 20171023
  33. DEXCHLORPHENIRAMINE MALEATE. [Concomitant]
     Active Substance: DEXCHLORPHENIRAMINE MALEATE
     Indication: UPPER RESPIRATORY TRACT INFECTION
     Dosage: 2 MG, 3X/DAY (TID)
     Route: 048
     Dates: start: 20170509, end: 20170512
  34. LACOSAMIDE. [Suspect]
     Active Substance: LACOSAMIDE
     Dosage: 150 MG, 2X/DAY (BID)
     Route: 048
     Dates: start: 20170307, end: 20170320
  35. LACOSAMIDE. [Suspect]
     Active Substance: LACOSAMIDE
     Dosage: 150MGQAM 200MG QPM
     Route: 048
     Dates: start: 20170320, end: 20170327
  36. LACOSAMIDE. [Suspect]
     Active Substance: LACOSAMIDE
     Dosage: 200 MG, 2X/DAY (BID)
     Route: 048
     Dates: start: 20170327, end: 20170418
  37. VALPROATE SODIUM. [Concomitant]
     Active Substance: VALPROATE SODIUM
     Dosage: 750 MG, 2X/DAY (BID)
     Route: 048
     Dates: start: 20170830
  38. LAMICTAL [Concomitant]
     Active Substance: LAMOTRIGINE
     Indication: PRODUCT USED FOR UNKNOWN INDICATION
     Dosage: 150 MG, 2X/DAY (BID), 50 MG/TAB 3 TAB BID
     Route: 048
  39. CLOBETASOL [Concomitant]
     Active Substance: CLOBETASOL
     Indication: SEBORRHOEIC DERMATITIS
     Dosage: UNK, ONCE DAILY (QD)
     Dates: start: 20170818, end: 20170825

REACTIONS (10)
  - Cytogenetic abnormality [Not Recovered/Not Resolved]
  - Off label use [Unknown]
  - Physical assault [Unknown]
  - Upper respiratory tract infection [Recovered/Resolved]
  - Overdose [Unknown]
  - Seizure [Unknown]
  - Seborrhoeic dermatitis [Recovering/Resolving]
  - Irritability [Unknown]
  - Emotional disorder [Recovered/Resolved]
  - Urinary tract infection [Recovered/Resolved]

NARRATIVE: CASE EVENT DATE: 2017
